FAERS Safety Report 5426281-3 (Version None)
Quarter: 2007Q3

REPORT INFORMATION
  Report Type: 
  Country: None (occurrence: None)
  Receive Date: 20070827
  Receipt Date: 20070817
  Transmission Date: 20080115
  Serious: Yes (Death, Other)
  Sender: FDA-Public Use
  Company Number: US-PURDUE-USA_2007_0026526

PATIENT
  Age: 50 Year
  Sex: Male
  Weight: 82 kg

DRUGS (4)
  1. OXYCONTIN [Suspect]
     Indication: DRUG ABUSER
     Dosage: UNK MG, UNK
  2. ALCOHOL [Suspect]
     Indication: DRUG ABUSER
     Dosage: UNK, UNK
  3. HYDROMORPHONE HCL [Suspect]
     Indication: DRUG ABUSER
     Dosage: UNK, UNK
  4. CODEINE SUL TAB [Suspect]
     Indication: DRUG ABUSER
     Dosage: UNK, UNK

REACTIONS (9)
  - CARDIAC FAILURE ACUTE [None]
  - CARDIOMEGALY [None]
  - CONTUSION [None]
  - EMPHYSEMA [None]
  - HAEMORRHAGE [None]
  - HEPATIC CIRRHOSIS [None]
  - HYPERTENSIVE HEART DISEASE [None]
  - OEDEMA [None]
  - SNORING [None]
